FAERS Safety Report 6558703-9 (Version None)
Quarter: 2010Q1

REPORT INFORMATION
  Report Type: 
  Country: None (occurrence: None)
  Receive Date: 20100129
  Receipt Date: 20100119
  Transmission Date: 20100710
  Serious: Yes (Death, Hospitalization)
  Sender: FDA-Public Use
  Company Number: US-PFIZER INC-2009265894

PATIENT
  Sex: Female

DRUGS (37)
  1. IRINOTECAN HCL [Suspect]
     Indication: GLIOBLASTOMA
     Dosage: 200 MG, 1 WEEK
     Route: 042
     Dates: start: 20090818, end: 20090818
  2. PREDNISONE [Suspect]
     Dosage: 10 MG/DAY
     Route: 048
     Dates: start: 20091001
  3. AVASTIN [Suspect]
     Indication: GLIOBLASTOMA
     Dosage: 600 MG, 1 WEEK
     Route: 042
     Dates: start: 20090818, end: 20090818
  4. CT-322 [Suspect]
     Indication: GLIOBLASTOMA MULTIFORME
     Dosage: 32 MG, 1 DAY
     Route: 042
     Dates: start: 20090225, end: 20090804
  5. DOCETAXEL [Suspect]
     Dosage: 120 MG, UNK
     Route: 042
     Dates: start: 20091001
  6. TEMOZOLOMIDE [Suspect]
     Indication: GLIOBLASTOMA MULTIFORME
     Dosage: 1 DF, 1 DAY
     Route: 048
     Dates: start: 20090225, end: 20090801
  7. PAXIL [Concomitant]
  8. LOTREL [Concomitant]
  9. KEPPRA [Concomitant]
     Dosage: UNK
     Dates: start: 20090101
  10. POTASSIUM CHLORIDE [Concomitant]
     Dosage: UNK
     Dates: start: 20090128
  11. CALCIUM WITH VITAMIN D [Concomitant]
     Dosage: UNK
     Dates: start: 20090128
  12. MULTIPLE VITAMINS [Concomitant]
  13. PRILOSEC [Concomitant]
     Dosage: UNK
     Dates: start: 20090128
  14. BACTRIM [Concomitant]
     Dosage: UNK
     Dates: start: 20090225
  15. DECADRON [Concomitant]
     Dosage: UNK
     Dates: start: 20090123, end: 20090225
  16. FIBERCON [Concomitant]
     Dosage: UNK
     Dates: start: 20070302, end: 20070307
  17. IBUPROFEN [Concomitant]
     Dosage: UNK
     Dates: start: 20090301
  18. AMLODIPINE [Concomitant]
     Dosage: UNK
     Dates: start: 20090101, end: 20090303
  19. BENAZEPRIL HYDROCHLORIDE [Concomitant]
     Dosage: UNK
     Dates: start: 20090101, end: 20090303
  20. CLONIDINE [Concomitant]
     Dosage: UNK
     Dates: start: 20090101, end: 20090303
  21. HYDROCHLOROTHIAZIDE [Concomitant]
     Dosage: UNK
     Dates: start: 20090129, end: 20090201
  22. ENALAPRIL GENERICS [Concomitant]
     Dosage: UNK
     Dates: start: 20090101, end: 20090303
  23. ZOSYN [Concomitant]
     Dosage: UNK
     Dates: start: 20090123, end: 20090131
  24. HEPARIN [Concomitant]
     Dosage: UNK
     Dates: start: 20090123, end: 20090131
  25. INSULIN [Concomitant]
     Dosage: UNK
     Dates: start: 20090101, end: 20090303
  26. LISINOPRIL [Concomitant]
     Dosage: UNK
     Dates: start: 20090201, end: 20090301
  27. PROTONIX [Concomitant]
     Dosage: UNK
     Dates: start: 20080101, end: 20090127
  28. CORTISONE [Concomitant]
     Dosage: UNK
     Dates: start: 20090415, end: 20090415
  29. VITAMIN PREPARATION COMPOUND [Concomitant]
     Dosage: UNK
     Dates: start: 20080101
  30. TYLENOL-500 [Concomitant]
     Dosage: UNK
     Dates: start: 20090101
  31. ZOFRAN [Concomitant]
     Dosage: UNK
     Dates: start: 20090225
  32. CIPRO [Concomitant]
     Dosage: UNK
     Dates: start: 20090617, end: 20090618
  33. IMODIUM [Concomitant]
     Dosage: UNK
     Dates: start: 20090825
  34. LOMOTIL [Concomitant]
     Dosage: UNK
     Dates: start: 20090826
  35. ALOXI [Concomitant]
     Dosage: UNK
     Dates: start: 20090818, end: 20090818
  36. ATROPINE [Concomitant]
     Dosage: UNK
     Dates: start: 20090818, end: 20090818
  37. DEXAMETHASONE [Concomitant]
     Dosage: UNK
     Dates: start: 20090806

REACTIONS (7)
  - ASTHENIA [None]
  - BRAIN NEOPLASM [None]
  - DEHYDRATION [None]
  - MALIGNANT NEOPLASM PROGRESSION [None]
  - NEUTROPENIA [None]
  - PANCYTOPENIA [None]
  - THROMBOCYTOPENIA [None]
